FAERS Safety Report 18859425 (Version 1)
Quarter: 2021Q1

REPORT INFORMATION
  Report Type: Spontaneous
  Country: US (occurrence: US)
  Receive Date: 20210207
  Receipt Date: 20210207
  Transmission Date: 20210420
  Serious: Yes (Life-Threatening)
  Sender: FDA-Public Use
  Company Number: None

PATIENT
  Age: 22 Year
  Sex: Female
  Weight: 92.99 kg

DRUGS (1)
  1. NEXPLANON [Suspect]
     Active Substance: ETONOGESTREL
     Dates: start: 20121101

REACTIONS (3)
  - Hysterectomy [None]
  - Malignant peritoneal neoplasm [None]
  - Abdominal discomfort [None]

NARRATIVE: CASE EVENT DATE: 20200821
